FAERS Safety Report 7784866-3 (Version None)
Quarter: 2011Q3

REPORT INFORMATION
  Report Type: 
  Country: None (occurrence: None)
  Receive Date: 20110928
  Receipt Date: 20110922
  Transmission Date: 20111222
  Serious: Yes (Hospitalization, Other)
  Sender: FDA-Public Use
  Company Number: FR-PFIZER INC-2011225140

PATIENT
  Age: 16 Year
  Sex: Male

DRUGS (3)
  1. EFFEXOR XR [Suspect]
     Dosage: 75 MG, SINGLE
     Route: 048
     Dates: start: 20101201, end: 20101201
  2. ACETAMINOPHEN W/ PROPOXYPHENE HCL [Suspect]
     Dosage: UNK
     Route: 048
     Dates: start: 20101201, end: 20101201
  3. ALCOHOL [Suspect]

REACTIONS (4)
  - VOMITING [None]
  - TOXICITY TO VARIOUS AGENTS [None]
  - DRUG LEVEL INCREASED [None]
  - DEPRESSION [None]
